FAERS Safety Report 17825732 (Version 3)
Quarter: 2020Q3

REPORT INFORMATION
  Report Type: Spontaneous
  Country: US (occurrence: US)
  Receive Date: 20200526
  Receipt Date: 20200709
  Transmission Date: 20201102
  Serious: Yes (Hospitalization, Other)
  Sender: FDA-Public Use
  Company Number: US-ASTRAZENECA-2020SE54242

PATIENT
  Age: 17559 Day
  Sex: Female
  Weight: 103.9 kg

DRUGS (73)
  1. FARXIGA [Suspect]
     Active Substance: DAPAGLIFLOZIN PROPANEDIOL
     Indication: TYPE 2 DIABETES MELLITUS
     Route: 048
     Dates: start: 20150101, end: 20190322
  2. FARXIGA [Suspect]
     Active Substance: DAPAGLIFLOZIN PROPANEDIOL
     Indication: BLOOD PRESSURE ABNORMAL
     Route: 048
     Dates: start: 20150101, end: 20190322
  3. GABAPENTIN. [Concomitant]
     Active Substance: GABAPENTIN
     Route: 048
     Dates: start: 20171010
  4. DAKIN [Concomitant]
     Dosage: 0.125% SOLUTION
     Dates: start: 20180529
  5. ONDANSETRON [Concomitant]
     Active Substance: ONDANSETRON
  6. VANCOMYCIN [Concomitant]
     Active Substance: VANCOMYCIN
  7. KETOROLAC [Concomitant]
     Active Substance: KETOROLAC TROMETHAMINE
  8. DUONEB [Concomitant]
     Active Substance: ALBUTEROL SULFATE\IPRATROPIUM BROMIDE
  9. SENOKOT [Concomitant]
     Active Substance: SENNOSIDES
  10. ALBUTEROL SULFATE. [Concomitant]
     Active Substance: ALBUTEROL SULFATE
  11. FARXIGA [Suspect]
     Active Substance: DAPAGLIFLOZIN PROPANEDIOL
     Indication: TYPE 2 DIABETES MELLITUS
     Route: 048
     Dates: start: 20180409
  12. CIPROFLOXACIN. [Concomitant]
     Active Substance: CIPROFLOXACIN
     Route: 048
     Dates: start: 20180416
  13. CLINDAMYCIN. [Concomitant]
     Active Substance: CLINDAMYCIN
     Route: 048
     Dates: start: 20180419
  14. OXYCODONE/ACETAMINOPHEN [Concomitant]
     Active Substance: ACETAMINOPHEN\OXYCODONE HYDROCHLORIDE
     Dosage: 325 MG DAILY
     Route: 048
     Dates: start: 20180504
  15. IPRATROPIUM [Concomitant]
     Active Substance: IPRATROPIUM
     Dosage: 325 MG DAILY
     Route: 048
     Dates: start: 20180504
  16. DOXYCYCLINE HYCLATE. [Concomitant]
     Active Substance: DOXYCYCLINE HYCLATE
  17. OXAPROZIN. [Concomitant]
     Active Substance: OXAPROZIN
  18. LUNESTA [Concomitant]
     Active Substance: ESZOPICLONE
  19. CHANTIX [Concomitant]
     Active Substance: VARENICLINE TARTRATE
  20. MISOPROSTOL. [Concomitant]
     Active Substance: MISOPROSTOL
  21. DOCUSATE SODIUM. [Concomitant]
     Active Substance: DOCUSATE SODIUM
  22. OMEPRAZOLE. [Concomitant]
     Active Substance: OMEPRAZOLE
     Route: 048
     Dates: start: 20171229
  23. AMOXICILLIN. [Concomitant]
     Active Substance: AMOXICILLIN
     Route: 048
     Dates: start: 20180627
  24. POTASSIUM CHLORIDE. [Concomitant]
     Active Substance: POTASSIUM CHLORIDE
  25. LOVENOX [Concomitant]
     Active Substance: ENOXAPARIN SODIUM
  26. PANTOPRAZOLE [Concomitant]
     Active Substance: PANTOPRAZOLE
  27. SYMBICORT [Concomitant]
     Active Substance: BUDESONIDE\FORMOTEROL FUMARATE DIHYDRATE
     Dosage: 2 PUFFS TWICE A DAY
     Route: 048
     Dates: start: 20170316
  28. MELOXICAM. [Concomitant]
     Active Substance: MELOXICAM
     Route: 048
     Dates: start: 20171002
  29. MELATONIN [Concomitant]
     Active Substance: MELATONIN
     Route: 048
     Dates: start: 20171006
  30. PROAIR HFA [Concomitant]
     Active Substance: ALBUTEROL SULFATE
     Route: 048
     Dates: start: 20180214
  31. BUPROPION. [Concomitant]
     Active Substance: BUPROPION
     Route: 048
     Dates: start: 20180410
  32. DOXEPIN [Concomitant]
     Active Substance: DOXEPIN
  33. AMOX?CLAV [Concomitant]
     Active Substance: AMOXICILLIN\CLAVULANATE POTASSIUM
  34. LISINOPRIL. [Concomitant]
     Active Substance: LISINOPRIL
  35. TEMAZEPAM. [Concomitant]
     Active Substance: TEMAZEPAM
  36. CLOTRIMAZOLE AND BETAMETHASONE DIPROPIONATE [Concomitant]
     Active Substance: BETAMETHASONE\BETAMETHASONE DIPROPIONATE\CLOTRIMAZOLE
  37. CEFDINIR. [Concomitant]
     Active Substance: CEFDINIR
  38. DEXTROSE. [Concomitant]
     Active Substance: DEXTROSE
  39. FARXIGA [Suspect]
     Active Substance: DAPAGLIFLOZIN PROPANEDIOL
     Indication: BLOOD PRESSURE ABNORMAL
     Route: 048
     Dates: start: 20180409
  40. NOVOLOG [Concomitant]
     Active Substance: INSULIN ASPART
     Route: 058
     Dates: start: 20180216
  41. METFORMIN [Concomitant]
     Active Substance: METFORMIN HYDROCHLORIDE
     Route: 048
     Dates: start: 20180221
  42. IBUPROFEN. [Concomitant]
     Active Substance: IBUPROFEN
     Route: 048
     Dates: start: 20180328
  43. HUMALOG [Concomitant]
     Active Substance: INSULIN LISPRO
  44. LIDOCAINE. [Concomitant]
     Active Substance: LIDOCAINE
  45. APIDRA [Concomitant]
     Active Substance: INSULIN GLULISINE
  46. FLUCONAZOLE. [Concomitant]
     Active Substance: FLUCONAZOLE
  47. NYSTOP [Concomitant]
     Active Substance: NYSTATIN
  48. BYDUREON [Concomitant]
     Active Substance: EXENATIDE
  49. AZELEX [Concomitant]
     Active Substance: AZELAIC ACID
  50. ZOSYN [Concomitant]
     Active Substance: PIPERACILLIN SODIUM\TAZOBACTAM SODIUM
  51. NITROSTAT [Concomitant]
     Active Substance: NITROGLYCERIN
  52. FENTANYL. [Concomitant]
     Active Substance: FENTANYL
  53. NICOTINE. [Concomitant]
     Active Substance: NICOTINE
  54. FARXIGA [Suspect]
     Active Substance: DAPAGLIFLOZIN PROPANEDIOL
     Indication: WEIGHT DECREASED
     Route: 048
     Dates: start: 20150101, end: 20190322
  55. MONTELUKAST [Concomitant]
     Active Substance: MONTELUKAST SODIUM
     Route: 048
     Dates: start: 20170125
  56. HYDROCODONE/ACETAMINOPHEN [Concomitant]
     Active Substance: ACETAMINOPHEN\HYDROCODONE
     Dosage: 5?325 TB DAILY
     Route: 048
     Dates: start: 20180419
  57. DICLOFENAC [Concomitant]
     Active Substance: DICLOFENAC
  58. SODIUM CHLORIDE. [Concomitant]
     Active Substance: SODIUM CHLORIDE
  59. CETIRIZINE [Concomitant]
     Active Substance: CETIRIZINE HYDROCHLORIDE
  60. FARXIGA [Suspect]
     Active Substance: DAPAGLIFLOZIN PROPANEDIOL
     Indication: WEIGHT DECREASED
     Route: 048
     Dates: start: 20180409
  61. ATORVASTATIN [Concomitant]
     Active Substance: ATORVASTATIN
     Route: 048
     Dates: start: 20170511
  62. TIZANIDINE. [Concomitant]
     Active Substance: TIZANIDINE
     Dosage: 20.0MG EVERY 4 ? 6 HOURS
     Route: 048
     Dates: start: 20180125
  63. INVOKANA [Concomitant]
     Active Substance: CANAGLIFLOZIN
     Route: 048
     Dates: start: 20180214
  64. SULFAMETH/TRIMETHOPRIM [Concomitant]
     Active Substance: SULFAMETHOXAZOLE\TRIMETHOPRIM
  65. VIRTUSSIN [Concomitant]
  66. HYDROMET [Concomitant]
     Active Substance: HOMATROPINE METHYLBROMIDE\HYDROCODONE BITARTRATE
  67. CHLORHEXIDINE [Concomitant]
     Active Substance: CHLORHEXIDINE
  68. MONTELUKAST SODIUM. [Concomitant]
     Active Substance: MONTELUKAST SODIUM
  69. VITAMIN D [Concomitant]
     Active Substance: VITAMIN D NOS
     Dosage: 50,000 IU
     Route: 048
     Dates: start: 20180413
  70. BENZONATATE. [Concomitant]
     Active Substance: BENZONATATE
  71. GLUCAGON. [Concomitant]
     Active Substance: GLUCAGON
  72. CEPACOL [Concomitant]
     Active Substance: BENZOCAINE
  73. PROPOFOL. [Concomitant]
     Active Substance: PROPOFOL

REACTIONS (14)
  - Vulval abscess [Unknown]
  - Fournier^s gangrene [Unknown]
  - Perirectal abscess [Unknown]
  - Sepsis [Unknown]
  - Groin abscess [Unknown]
  - Cellulitis [Unknown]
  - Tooth abscess [Unknown]
  - Escherichia sepsis [Unknown]
  - Necrotising fasciitis [Unknown]
  - Subcutaneous abscess [Unknown]
  - Abscess limb [Unknown]
  - Perineal abscess [Unknown]
  - Abscess [Unknown]
  - Urinary tract infection [Unknown]

NARRATIVE: CASE EVENT DATE: 20180424
